FAERS Safety Report 9297786 (Version 2)
Quarter: 2013Q2

REPORT INFORMATION
  Report Type: Spontaneous
  Country: RU (occurrence: RU)
  Receive Date: 20130520
  Receipt Date: 20130628
  Transmission Date: 20140414
  Serious: Yes (Life-Threatening)
  Sender: FDA-Public Use
  Company Number: PHHY2013RU049662

PATIENT
  Age: 68 Year
  Sex: Female

DRUGS (1)
  1. EXFORGE [Suspect]
     Indication: HYPERTENSION
     Dosage: 1 DF (160MG VALS/5MG AMLO), QD

REACTIONS (2)
  - Blood pressure increased [Recovered/Resolved]
  - Feeling abnormal [Unknown]
